FAERS Safety Report 9146132 (Version 1)
Quarter: 2013Q1

REPORT INFORMATION
  Report Type: Spontaneous
  Country: US (occurrence: None)
  Receive Date: 20130206
  Receipt Date: 20130206
  Transmission Date: 20140127
  Serious: Yes (Death)
  Sender: FDA-Public Use
  Company Number: IMP_06389_2013

PATIENT
  Age: 39 Year
  Sex: Male

DRUGS (8)
  1. ALPRAZOLAM [Suspect]
     Indication: PRODUCT USED FOR UNKNOWN INDICATION
     Dosage: (DF)
  2. ACETAMINOPHEN W/DIPHENHYDRAMINE HYDROCHLORIDE [Suspect]
     Indication: PRODUCT USED FOR UNKNOWN INDICATION
     Dosage: (DF)
  3. LORAZEPAM [Suspect]
     Indication: PRODUCT USED FOR UNKNOWN INDICATION
     Dosage: (DF)
  4. ETHANOL [Suspect]
  5. ANDROGENS [Suspect]
     Dosage: (DF)
  6. NANDROLONE [Suspect]
     Dosage: (DF)
  7. METAXALONE [Suspect]
     Dosage: (DF)
  8. IBUPROFEN [Suspect]
     Dosage: (DF)

REACTIONS (2)
  - Poisoning [None]
  - Completed suicide [None]
